FAERS Safety Report 7486391-6 (Version None)
Quarter: 2011Q2

REPORT INFORMATION
  Report Type: 
  Country: None (occurrence: None)
  Receive Date: 20110517
  Receipt Date: 20110509
  Transmission Date: 20111010
  Serious: Yes (Hospitalization)
  Sender: FDA-Public Use
  Company Number: JP-CELGENEUS-087-21880-10122809

PATIENT
  Sex: Male
  Weight: 46.8 kg

DRUGS (14)
  1. MOBIC [Concomitant]
     Dosage: 10 MILLIGRAM
     Route: 048
  2. MAGMITT [Concomitant]
     Dosage: 990 MILLIGRAM
     Route: 048
  3. REVLIMID [Suspect]
     Indication: MULTIPLE MYELOMA
     Dosage: 20 MILLIGRAM
     Route: 048
     Dates: start: 20100908, end: 20100909
  4. DEXAMETHASONE [Suspect]
     Indication: MULTIPLE MYELOMA
     Dosage: 20 MILLIGRAM
     Route: 048
     Dates: start: 20100909, end: 20100909
  5. MORPHINE HCL ELIXIR [Suspect]
     Dosage: 10 MILLIGRAM
     Route: 048
     Dates: start: 20100908, end: 20100908
  6. MUCOSTA [Concomitant]
     Indication: PROPHYLAXIS
     Dosage: 200 MILLIGRAM
     Route: 048
  7. TOFRANIL [Concomitant]
     Dosage: 50 MILLIGRAM
     Route: 048
     Dates: end: 20100913
  8. MORPHINE HCL ELIXIR [Suspect]
     Route: 048
     Dates: start: 20100915, end: 20100915
  9. MORPHINE HCL ELIXIR [Suspect]
     Route: 048
     Dates: start: 20100925, end: 20100925
  10. SENNOSIDE [Concomitant]
     Dosage: 36 MILLIGRAM
     Route: 048
  11. LANSOPRAZOLE [Concomitant]
     Dosage: 15 MILLIGRAM
     Route: 048
  12. MS CONTIN [Concomitant]
     Dosage: 40 MILLIGRAM
     Route: 048
  13. MOHRUS TAPE [Concomitant]
     Dosage: OPTIMUM DOSE
     Route: 062
  14. MEXITIL [Concomitant]
     Dosage: 300 MILLIGRAM
     Route: 048

REACTIONS (3)
  - PLATELET COUNT DECREASED [None]
  - DELIRIUM [None]
  - ANAEMIA [None]
